FAERS Safety Report 10100960 (Version 2)
Quarter: 2014Q2

REPORT INFORMATION
  Report Type: Report from Study
  Country: AU (occurrence: AU)
  Receive Date: 20140424
  Receipt Date: 20140424
  Transmission Date: 20141212
  Serious: Yes (Other)
  Sender: FDA-Public Use
  Company Number: AU-ACCORD-023275

PATIENT
  Age: 51 Year
  Sex: Female

DRUGS (3)
  1. GEMCITABINE/GEMCITABINE HYDROCHLORIDE [Suspect]
     Indication: DIFFUSE LARGE B-CELL LYMPHOMA REFRACTORY
     Dosage: C4, D8 VGF GEMCITABINE 1G/M2,?D1, D8 Q21D
  2. PREDNISOLONE [Suspect]
     Indication: DIFFUSE LARGE B-CELL LYMPHOMA REFRACTORY
  3. VINORELBINE [Suspect]
     Indication: DIFFUSE LARGE B-CELL LYMPHOMA REFRACTORY
     Dosage: C4, D8 VGF VINORELBINE 25 MG/M2 ,?D1, D8 Q21D; 12 DAYS

REACTIONS (1)
  - Pneumocystis jirovecii pneumonia [Recovering/Resolving]
